FAERS Safety Report 11966828 (Version 1)
Quarter: 2016Q1

REPORT INFORMATION
  Report Type: Report from Study
  Country: DE (occurrence: DE)
  Receive Date: 20160127
  Receipt Date: 20160127
  Transmission Date: 20160526
  Serious: Yes (Hospitalization, Disabling)
  Sender: FDA-Public Use
  Company Number: DE-BAYER-2016-013964

PATIENT
  Age: 62 Year
  Sex: Male

DRUGS (3)
  1. CLOPIDOGREL [Interacting]
     Active Substance: CLOPIDOGREL BISULFATE
     Indication: HEART VALVE REPLACEMENT
  2. PHENPROCOUMON [Interacting]
     Active Substance: PHENPROCOUMON
     Indication: HEART VALVE REPLACEMENT
  3. ASA [Suspect]
     Active Substance: ASPIRIN
     Indication: HEART VALVE REPLACEMENT

REACTIONS (6)
  - Exophthalmos [None]
  - Blindness [None]
  - Conjunctival haemorrhage [None]
  - Eyelid haematoma [None]
  - Conjunctival oedema [None]
  - Labelled drug-drug interaction medication error [None]
